FAERS Safety Report 19057724 (Version 1)
Quarter: 2021Q1

REPORT INFORMATION
  Report Type: Spontaneous
  Country: US (occurrence: US)
  Receive Date: 20210325
  Receipt Date: 20210325
  Transmission Date: 20210420
  Serious: No
  Sender: FDA-Public Use
  Company Number: US-PFIZER INC-2021298965

PATIENT
  Age: 71 Year
  Sex: Female

DRUGS (1)
  1. LYRICA [Suspect]
     Active Substance: PREGABALIN
     Indication: PERONEAL NERVE PALSY
     Dosage: 150 MG, 2X/DAY (TAKE 1 CAPSULE (150 MG TOTAL) BY MOUTH 2 (TWO) TIMES DAILY)
     Route: 048

REACTIONS (2)
  - Off label use [Unknown]
  - Confusional state [Unknown]
